FAERS Safety Report 5160817-5 (Version None)
Quarter: 2006Q4

REPORT INFORMATION
  Report Type: 
  Country: None (occurrence: None)
  Receive Date: 20061121
  Receipt Date: 20061108
  Transmission Date: 20070319
  Serious: Yes (Other)
  Sender: FDA-Public Use
  Company Number: RU-2006-035414

PATIENT
  Sex: Female

DRUGS (1)
  1. FLUDARA [Suspect]
     Dosage: UNK, UNK, UNK

REACTIONS (2)
  - ANAEMIA HAEMOLYTIC AUTOIMMUNE [None]
  - AUTOIMMUNE THROMBOCYTOPENIA [None]
